FAERS Safety Report 9205426 (Version 3)
Quarter: 2013Q2

REPORT INFORMATION
  Report Type: Report from Study
  Country: GB (occurrence: GB)
  Receive Date: 20130403
  Receipt Date: 20130507
  Transmission Date: 20140414
  Serious: Yes (Death, Other)
  Sender: FDA-Public Use
  Company Number: GB-AMGEN-GBRCT2013022791

PATIENT
  Age: 81 Year
  Sex: Male
  Weight: 66 kg

DRUGS (4)
  1. ETANERCEPT [Suspect]
     Indication: RHEUMATOID ARTHRITIS
     Dosage: 25 MG, 2X/WEEK
     Dates: start: 20040607
  2. CLOPIDOGREL [Concomitant]
     Dosage: 25 MG, DAILY
  3. SIMVASTATIN [Concomitant]
     Dosage: 40 MG, 1X/DAY
  4. NADROPARIN [Concomitant]
     Dosage: 50 MG, 3X/DAY

REACTIONS (4)
  - Arthritis bacterial [Fatal]
  - Hip fracture [Fatal]
  - Carotid artery stenosis [Fatal]
  - Ischaemic stroke [Fatal]
